FAERS Safety Report 6067441-0 (Version None)
Quarter: 2009Q1

REPORT INFORMATION
  Report Type: 
  Country: None (occurrence: None)
  Receive Date: 20090205
  Receipt Date: 20090124
  Transmission Date: 20090719
  Serious: Yes (Other)
  Sender: FDA-Public Use
  Company Number: US-PFIZER INC-2008100620

PATIENT
  Sex: Female
  Weight: 46.72 kg

DRUGS (4)
  1. PROCARDIA [Suspect]
     Indication: HYPERTENSION
     Dosage: 20 MG, 1X/DAY
     Route: 048
  2. LEVOXYL [Concomitant]
     Indication: THYROID DISORDER
  3. ALBUTEROL [Concomitant]
  4. LUNESTA [Concomitant]

REACTIONS (3)
  - HYPERTENSION [None]
  - HYPOTENSION [None]
  - PANCREATIC CARCINOMA [None]
